FAERS Safety Report 11758308 (Version 1)
Quarter: 2015Q4

REPORT INFORMATION
  Report Type: Spontaneous
  Country: US (occurrence: US)
  Receive Date: 20151120
  Receipt Date: 20151120
  Transmission Date: 20160304
  Serious: Yes (Hospitalization, Other)
  Sender: FDA-Public Use
  Company Number: US-ACTAVIS-2015-25053

PATIENT
  Age: 71 Year
  Sex: Female

DRUGS (2)
  1. MESALAZINE (UNKNOWN) [Suspect]
     Active Substance: MESALAMINE
     Indication: PRODUCT USED FOR UNKNOWN INDICATION
     Dosage: UNK
     Route: 065
  2. LASIX [Concomitant]
     Active Substance: FUROSEMIDE
     Indication: OEDEMA PERIPHERAL
     Dosage: 20 MG, DAILY
     Route: 048

REACTIONS (1)
  - Interstitial lung disease [Recovered/Resolved]
